FAERS Safety Report 5364840-7 (Version None)
Quarter: 2007Q2

REPORT INFORMATION
  Report Type: 
  Country: None (occurrence: None)
  Receive Date: 20070621
  Receipt Date: 20070611
  Transmission Date: 20071010
  Serious: Yes (Other)
  Sender: FDA-Public Use
  Company Number: PHHO2007AR09901

PATIENT
  Sex: Female

DRUGS (1)
  1. AMLODIPINE BESILATE, HYDROCHLOROTHIAZIDE, VALSARTAN [Suspect]
     Indication: HYPERTENSION
     Dosage: 1 TABLET

REACTIONS (2)
  - CATARACT [None]
  - SURGERY [None]
